FAERS Safety Report 8797479 (Version 1)
Quarter: 2012Q4

REPORT INFORMATION
  Report Type: 
  Country: US (occurrence: US)
  Receive Date: 20120920
  Receipt Date: 20120920
  Transmission Date: 20130627
  Serious: No
  Sender: FDA-Public Use
  Company Number: US-PFIZER INC-2012231188

PATIENT
  Age: 61 Year
  Sex: Female
  Weight: 74.83 kg

DRUGS (2)
  1. LYRICA [Suspect]
     Indication: RESTLESS LEGS SYNDROME
     Dosage: 50 mg, 2x/day
     Dates: start: 20120814
  2. LYRICA [Suspect]
     Indication: MUSCLE SPASMS

REACTIONS (3)
  - Product quality issue [Unknown]
  - Paraesthesia oral [Recovering/Resolving]
  - Off label use [Unknown]
